FAERS Safety Report 4423569-X (Version None)
Quarter: 2004Q3

REPORT INFORMATION
  Report Type: 
  Country: None (occurrence: None)
  Receive Date: 20040811
  Receipt Date: 20040617
  Transmission Date: 20050211
  Serious: Yes (Other)
  Sender: FDA-Public Use
  Company Number: PHEH2004US06649

PATIENT
  Age: 63 Year
  Sex: Male
  Weight: 152 kg

DRUGS (10)
  1. ZOMETA [Suspect]
     Indication: OSTEOPOROSIS PROPHYLAXIS
     Dosage: UNK/ Q3MONTHS
     Dates: start: 20030101
  2. LUPRON [Concomitant]
     Indication: PROSTATE CANCER
     Dosage: 30 MG, Q4H
     Route: 030
     Dates: start: 20020101
  3. ACTOS [Concomitant]
     Indication: DIABETES MELLITUS
  4. GLUCOTROL XL [Concomitant]
     Indication: DIABETES MELLITUS
  5. FLOMAX [Concomitant]
     Indication: PROSTATE CANCER
  6. DIAZEPAM [Concomitant]
  7. DARVOCET-N 100 [Concomitant]
     Indication: ARTHRITIS
  8. TYLENOL [Concomitant]
     Indication: ARTHRITIS
  9. LIPITOR [Concomitant]
     Indication: BLOOD TRIGLYCERIDES INCREASED
  10. TRICOR [Concomitant]
     Indication: BLOOD TRIGLYCERIDES INCREASED

REACTIONS (1)
  - OSTEOPOROSIS [None]
